FAERS Safety Report 5080205-X (Version None)
Quarter: 2006Q3

REPORT INFORMATION
  Report Type: 
  Country: None (occurrence: None)
  Receive Date: 20060815
  Receipt Date: 20060804
  Transmission Date: 20061208
  Serious: Yes (Death)
  Sender: FDA-Public Use
  Company Number: US-JNJFOC-20060404380

PATIENT
  Sex: Female
  Weight: 99.79 kg

DRUGS (5)
  1. RISPERDAL CONSTA [Suspect]
     Indication: PSYCHOTIC DISORDER
     Route: 030
  2. RISPERDAL [Suspect]
     Indication: PSYCHOTIC DISORDER
  3. DEPAKOTE ER [Concomitant]
     Indication: MOOD ALTERED
     Dosage: AT BEDTIME (HS)
  4. COGENTIN [Concomitant]
     Indication: EXTRAPYRAMIDAL DISORDER
  5. DIPHENHYDRAMINE HCL [Concomitant]
     Indication: DYSTONIA
     Dosage: TWO 25 MG DOSES AT BEDTIME

REACTIONS (1)
  - DEATH [None]
